FAERS Safety Report 15776965 (Version 1)
Quarter: 2018Q4

REPORT INFORMATION
  Report Type: Spontaneous
  Country: US (occurrence: US)
  Receive Date: 20181231
  Receipt Date: 20181231
  Transmission Date: 20190205
  Serious: Yes (Hospitalization, Disabling, Other)
  Sender: FDA-Public Use
  Company Number: US-NOVOPROD-640120

PATIENT
  Age: 62 Year
  Sex: Female

DRUGS (1)
  1. LEVEMIR [Suspect]
     Active Substance: INSULIN DETEMIR
     Indication: PRODUCT USED FOR UNKNOWN INDICATION
     Dosage: UNK
     Route: 058

REACTIONS (10)
  - Intracranial aneurysm [Unknown]
  - Road traffic accident [Unknown]
  - Synovial cyst [Unknown]
  - Disability [Not Recovered/Not Resolved]
  - Lung neoplasm malignant [Recovered/Resolved]
  - Lung neoplasm malignant [Not Recovered/Not Resolved]
  - Breast cancer [Recovered/Resolved]
  - Sepsis [Unknown]
  - Loss of consciousness [Unknown]
  - Hypoaesthesia [Not Recovered/Not Resolved]

NARRATIVE: CASE EVENT DATE: 20140723
